FAERS Safety Report 19022323 (Version 2)
Quarter: 2021Q4

REPORT INFORMATION
  Report Type: Spontaneous
  Country: CA (occurrence: CA)
  Receive Date: 20210317
  Receipt Date: 20211215
  Transmission Date: 20220303
  Serious: Yes (Life-Threatening)
  Sender: FDA-Public Use
  Company Number: CA-PFIZER INC-2021257576

PATIENT
  Age: 21 Year
  Sex: Female

DRUGS (2)
  1. BUPIVACAINE HYDROCHLORIDE [Suspect]
     Active Substance: BUPIVACAINE HYDROCHLORIDE
     Indication: Epidural anaesthesia
     Dosage: FREQUENCY ONCE
     Route: 008
  2. FENTANYL CITRATE [Suspect]
     Active Substance: FENTANYL CITRATE
     Indication: Epidural anaesthesia
     Dosage: FREQUENCY ONCE
     Route: 008

REACTIONS (5)
  - Dyspnoea [Unknown]
  - Headache [Unknown]
  - Oxygen saturation decreased [Unknown]
  - Somnolence [Unknown]
  - Vomiting [Unknown]
